FAERS Safety Report 6089442-9 (Version None)
Quarter: 2009Q1

REPORT INFORMATION
  Report Type: 
  Country: None (occurrence: None)
  Receive Date: 20090219
  Receipt Date: 20090203
  Transmission Date: 20090719
  Serious: Yes (Hospitalization)
  Sender: FDA-Public Use
  Company Number: 000320

PATIENT
  Sex: Female
  Weight: 70 kg

DRUGS (9)
  1. NEUPRO [Suspect]
     Indication: PARKINSON'S DISEASE
     Dosage: (2 MG QD), (4 MG QD, (6 MG QD), (8 MG QD)
     Dates: start: 20060714, end: 20060716
  2. NEUPRO [Suspect]
     Indication: PARKINSON'S DISEASE
     Dosage: (2 MG QD), (4 MG QD, (6 MG QD), (8 MG QD)
     Dates: start: 20060717, end: 20060719
  3. NEUPRO [Suspect]
     Indication: PARKINSON'S DISEASE
     Dosage: (2 MG QD), (4 MG QD, (6 MG QD), (8 MG QD)
     Dates: start: 20060720, end: 20060726
  4. NEUPRO [Suspect]
     Indication: PARKINSON'S DISEASE
     Dosage: (2 MG QD), (4 MG QD, (6 MG QD), (8 MG QD)
     Dates: start: 20060727
  5. LEVOCOMP [Concomitant]
  6. SIFROL [Concomitant]
  7. THIACIDE [Concomitant]
  8. ASPIRIN [Concomitant]
  9. URSO FALK [Concomitant]

REACTIONS (1)
  - ACUTE MYOCARDIAL INFARCTION [None]
